FAERS Safety Report 4991666-6 (Version None)
Quarter: 2006Q2

REPORT INFORMATION
  Report Type: 
  Country: None (occurrence: None)
  Receive Date: 20060504
  Receipt Date: 20060426
  Transmission Date: 20061013
  Serious: Yes (Life-Threatening, Hospitalization)
  Sender: FDA-Public Use
  Company Number: GB-AVENTIS-200612458EU

PATIENT
  Age: 73 Year
  Sex: Female

DRUGS (14)
  1. CLEXANE [Suspect]
     Indication: MYOCARDIAL INFARCTION
     Route: 058
     Dates: start: 20060330, end: 20060404
  2. CLOPIDOGREL [Suspect]
     Indication: MYOCARDIAL INFARCTION
     Route: 048
     Dates: start: 20060328, end: 20060404
  3. ASPIRIN [Suspect]
     Indication: MYOCARDIAL INFARCTION
     Route: 048
     Dates: start: 20060328, end: 20060404
  4. ROSUVASTATIN [Concomitant]
     Indication: HYPERCHOLESTEROLAEMIA
     Route: 048
     Dates: start: 20050101
  5. NICORANDIL [Concomitant]
     Indication: ANGINA PECTORIS
     Route: 048
     Dates: start: 19970101, end: 20060404
  6. UNIVER [Concomitant]
     Indication: ATRIAL FIBRILLATION
     Route: 048
     Dates: start: 19990101, end: 20060328
  7. DIGOXIN [Concomitant]
     Indication: ATRIAL FIBRILLATION
     Route: 048
     Dates: start: 19990101
  8. FRUSEMIDE [Concomitant]
     Dates: start: 20000101
  9. RAMIPRIL [Concomitant]
     Dates: start: 20050101
  10. SERETIDE [Concomitant]
     Indication: CHRONIC OBSTRUCTIVE PULMONARY DISEASE
     Dates: start: 20000101
  11. SALBUTAMOL [Concomitant]
     Indication: CHRONIC OBSTRUCTIVE PULMONARY DISEASE
     Dosage: DOSE: UNKNOWN DOSE
     Route: 055
     Dates: start: 19990101
  12. TIOTROPIUM BROMIDE [Concomitant]
     Dosage: DOSE: UNKNOWN DOSE
     Route: 055
     Dates: start: 20050101
  13. ACETAMINOPHEN W/ CODEINE [Concomitant]
     Dosage: DOSE: 30/500
  14. ASPIRIN [Concomitant]
     Dates: start: 19970101

REACTIONS (3)
  - CARDIAC ARREST [None]
  - HAEMATOMA [None]
  - HAEMOGLOBIN DECREASED [None]
